FAERS Safety Report 7360556-6 (Version None)
Quarter: 2011Q1

REPORT INFORMATION
  Report Type: 
  Country: None (occurrence: None)
  Receive Date: 20110310
  Receipt Date: 20110223
  Transmission Date: 20110831
  Serious: Yes (Hospitalization, Other)
  Sender: FDA-Public Use
  Company Number: 2011MA001712

PATIENT
  Age: 48 Year
  Sex: Female
  Weight: 56.5 kg

DRUGS (2)
  1. PHENYTOIN [Suspect]
     Indication: EPILEPSY
     Dosage: 300 MG;QD;
  2. CARBAMAZEPINE [Concomitant]

REACTIONS (14)
  - LYMPHADENOPATHY MEDIASTINAL [None]
  - ARTHRALGIA [None]
  - WHITE BLOOD CELL COUNT INCREASED [None]
  - PULMONARY INFARCTION [None]
  - PYREXIA [None]
  - GLOBULINS INCREASED [None]
  - LYMPHADENOPATHY [None]
  - LUPUS-LIKE SYNDROME [None]
  - GAMMA-GLUTAMYLTRANSFERASE INCREASED [None]
  - INTERSTITIAL LUNG DISEASE [None]
  - ANTINUCLEAR ANTIBODY POSITIVE [None]
  - BLOOD ALKALINE PHOSPHATASE INCREASED [None]
  - LYMPHOCYTE STIMULATION TEST POSITIVE [None]
  - LYMPHOCYTIC INFILTRATION [None]
